FAERS Safety Report 25591825 (Version 1)
Quarter: 2025Q3

REPORT INFORMATION
  Report Type: Report from Study
  Country: US (occurrence: US)
  Receive Date: 20250722
  Receipt Date: 20250722
  Transmission Date: 20251021
  Serious: No
  Sender: VANDA PHARMACEUTICALS
  Company Number: US-VANDA PHARMACEUTICALS, INC-2024TASUS007436

PATIENT
  Sex: Female
  Weight: 26.803 kg

DRUGS (3)
  1. HETLIOZ LQ [Suspect]
     Active Substance: TASIMELTEON
     Indication: Product used for unknown indication
     Dosage: 3.9 MILLILITER, QD, EVERY EVENING (1 HOUR BEFORE BEDTIME AT SAME TIME EVERY NIGHT, WITHOUT FOOD)
     Route: 048
  2. NYSTATIN [Concomitant]
     Active Substance: NYSTATIN
     Indication: Product used for unknown indication
  3. GUANFACINE HYDROCHLORIDE [Concomitant]
     Active Substance: GUANFACINE HYDROCHLORIDE
     Indication: Product used for unknown indication

REACTIONS (1)
  - Insomnia [Unknown]
